FAERS Safety Report 20498660 (Version 4)
Quarter: 2022Q2

REPORT INFORMATION
  Report Type: Report from Study
  Country: US (occurrence: US)
  Receive Date: 20220222
  Receipt Date: 20220609
  Transmission Date: 20220721
  Serious: Yes (Death, Other)
  Sender: FDA-Public Use
  Company Number: US-ACADIA PHARMACEUTICALS INC.-ACA-2022-PIM-000433

PATIENT
  Sex: Female
  Weight: 74 kg

DRUGS (13)
  1. NUPLAZID [Suspect]
     Active Substance: PIMAVANSERIN TARTRATE
     Indication: Parkinson^s disease psychosis
     Dosage: 34 MILLIGRAM, QD
     Route: 048
     Dates: start: 202112
  2. NUPLAZID [Suspect]
     Active Substance: PIMAVANSERIN TARTRATE
     Indication: Hallucination
     Dosage: 34 MILLIGRAM, QD
     Route: 048
     Dates: start: 20220127
  3. NUPLAZID [Suspect]
     Active Substance: PIMAVANSERIN TARTRATE
     Indication: Delusion
     Dosage: HALF DOSE
     Route: 048
     Dates: end: 20220503
  4. BENADRYL [Suspect]
     Active Substance: DIPHENHYDRAMINE HYDROCHLORIDE
     Indication: Insomnia
     Dosage: 12.5MG AS NEEDED FOR BEDTIME
  5. METFORMIN HYDROCHLORIDE [Concomitant]
     Active Substance: METFORMIN HYDROCHLORIDE
  6. METOPROLOL [Concomitant]
     Active Substance: METOPROLOL
     Dosage: 25 MILLIGRAM, QD ER
  7. CHOLECALCIFEROL [Concomitant]
     Active Substance: CHOLECALCIFEROL
  8. XYLOMETAZOLINE HYDROCHLORIDE [Concomitant]
     Active Substance: XYLOMETAZOLINE HYDROCHLORIDE
     Indication: Rhinorrhoea
  9. CLARITIN [Concomitant]
     Active Substance: LORATADINE
     Indication: Rhinorrhoea
  10. ELIQUIS [Concomitant]
     Active Substance: APIXABAN
     Dosage: 2.5 MG QD
  11. HYDROCHLOROTHIAZIDE [Concomitant]
     Active Substance: HYDROCHLOROTHIAZIDE
  12. TRAMADOL [Concomitant]
     Active Substance: TRAMADOL
  13. CARBIDOPA\LEVODOPA [Concomitant]
     Active Substance: CARBIDOPA\LEVODOPA
     Dosage: 25/100 BID AND ONE-HALF PILL IN MIDDLE OF DAY

REACTIONS (14)
  - Death [Recovered/Resolved]
  - Seizure [Unknown]
  - Petit mal epilepsy [Recovered/Resolved]
  - Condition aggravated [Unknown]
  - Insomnia [Unknown]
  - Trance [Unknown]
  - Balance disorder [Unknown]
  - Abnormal behaviour [Unknown]
  - Tremor [Unknown]
  - Underdose [Unknown]
  - Agitation [Unknown]
  - Somnolence [Unknown]
  - Somnolence [Unknown]
  - Confusional state [Unknown]

NARRATIVE: CASE EVENT DATE: 20220101
